FAERS Safety Report 5607981-9 (Version None)
Quarter: 2008Q1

REPORT INFORMATION
  Report Type: 
  Country: None (occurrence: None)
  Receive Date: 20080130
  Receipt Date: 20080125
  Transmission Date: 20080703
  Serious: Yes (Hospitalization)
  Sender: FDA-Public Use
  Company Number: A0706413A

PATIENT
  Age: 63 Year
  Sex: Male
  Weight: 62 kg

DRUGS (2)
  1. ANTAK [Suspect]
     Indication: DRUG USE FOR UNKNOWN INDICATION
     Dates: start: 20080118, end: 20080120
  2. KETOPROFEN [Concomitant]

REACTIONS (6)
  - ERYTHEMA [None]
  - HAEMATOMA [None]
  - OEDEMA [None]
  - PAIN [None]
  - PHARMACEUTICAL PRODUCT COMPLAINT [None]
  - RASH [None]
